FAERS Safety Report 11628497 (Version 1)
Quarter: 2015Q4

REPORT INFORMATION
  Report Type: Spontaneous
  Country: US (occurrence: None)
  Receive Date: 20151013
  Receipt Date: 20151013
  Transmission Date: 20160304
  Serious: No
  Sender: FDA-Public Use
  Company Number: None

PATIENT
  Sex: Male

DRUGS (1)
  1. SUTENT [Suspect]
     Active Substance: SUNITINIB MALATE
     Indication: THYMOMA MALIGNANT
     Route: 048
     Dates: start: 20150902

REACTIONS (3)
  - Pain [None]
  - Diarrhoea [None]
  - Gait disturbance [None]

NARRATIVE: CASE EVENT DATE: 2015
